FAERS Safety Report 21658438 (Version 1)
Quarter: 2022Q4

REPORT INFORMATION
  Report Type: Spontaneous
  Country: CN (occurrence: CN)
  Receive Date: 20221129
  Receipt Date: 20221129
  Transmission Date: 20230113
  Serious: Yes (Other)
  Sender: FDA-Public Use
  Company Number: None

PATIENT
  Age: 27 Year
  Sex: Female
  Weight: 53.8 kg

DRUGS (14)
  1. CYCLOPHOSPHAMIDE [Suspect]
     Active Substance: CYCLOPHOSPHAMIDE
     Indication: Malignant hydatidiform mole
     Dosage: (DOSAGE FORM: POWDER INJECTION) 0.9 G, QD (DILUTED WITH SODIUM CHLORIDE 500 ML)
     Route: 041
     Dates: start: 20221114, end: 20221114
  2. SODIUM CHLORIDE [Suspect]
     Active Substance: SODIUM CHLORIDE
     Indication: Medication dilution
     Dosage: 250 ML, QD (USED TO DILUTE DACTINOMYCIN 0.5 MG)
     Route: 041
     Dates: start: 20221107, end: 20221108
  3. METHOTREXATE [Suspect]
     Active Substance: METHOTREXATE
     Indication: Malignant hydatidiform mole
     Dosage: 150 MG, QD (DILUTED WITH SODIUM CHLORIDE 30 ML)
     Route: 042
     Dates: start: 20221107, end: 20221107
  4. METHOTREXATE [Suspect]
     Active Substance: METHOTREXATE
     Dosage: 150 MG, 2 TIMES A DAY (DILUTED WITH SODIUM CHLORIDE 500 ML)
     Route: 041
     Dates: start: 20221107, end: 20221107
  5. VINCRISTINE SULFATE [Suspect]
     Active Substance: VINCRISTINE SULFATE
     Indication: Malignant hydatidiform mole
     Dosage: 2 MG, QD (DILUTED WITH SODIUM CHLORIDE 30 ML)
     Route: 042
     Dates: start: 20221114, end: 20221114
  6. ETOPOSIDE [Suspect]
     Active Substance: ETOPOSIDE
     Indication: Malignant hydatidiform mole
     Dosage: 0.15 G, QD (DILUTED WITH SODIUM CHLORIDE 250 ML)
     Route: 041
     Dates: start: 20221107, end: 20221108
  7. DACTINOMYCIN [Suspect]
     Active Substance: DACTINOMYCIN
     Indication: Malignant hydatidiform mole
     Dosage: 0.5 MG, QD (DILUTED WITH SODIUM CHLORIDE  250 ML)
     Route: 041
     Dates: start: 20221107, end: 20221108
  8. LEUCOVORIN CALCIUM [Concomitant]
     Active Substance: LEUCOVORIN CALCIUM
     Indication: Detoxification
     Dosage: 15 MG,2 TIMES A DAY (DILUTED WITH SODIUM CHLORIDE 4 ML)
     Route: 042
     Dates: start: 20221108, end: 20221109
  9. SODIUM CHLORIDE [Concomitant]
     Active Substance: SODIUM CHLORIDE
     Indication: Vehicle solution use
     Dosage: 500 ML, QD (USED TO DILUTE WITH 0.9 G CYCLOPHOSPHAMIDE)
     Route: 041
     Dates: start: 20221114, end: 20221114
  10. SODIUM CHLORIDE [Concomitant]
     Active Substance: SODIUM CHLORIDE
     Dosage: 30 ML, QD (USED TO DILUTE 150 MG METHOTREXATE)
     Route: 042
     Dates: start: 20221107, end: 20221107
  11. SODIUM CHLORIDE [Concomitant]
     Active Substance: SODIUM CHLORIDE
     Dosage: 500 ML, 2 TIMES A DAY (USED TO DILUTE 150 MG METHOTREXATE)
     Route: 041
     Dates: start: 20221107, end: 20221107
  12. SODIUM CHLORIDE [Concomitant]
     Active Substance: SODIUM CHLORIDE
     Dosage: 30 ML,QD (USED TO DILUTE VINCRISTINE SULFATE 2MG)
     Route: 042
     Dates: start: 20221114, end: 20221114
  13. SODIUM CHLORIDE [Concomitant]
     Active Substance: SODIUM CHLORIDE
     Dosage: 4 ML , 2 TIMES A DAY (USED TO DILUTE 15 MG CALCIUM FOLINATE)
     Route: 042
     Dates: start: 20221108, end: 20221109
  14. SODIUM CHLORIDE [Concomitant]
     Active Substance: SODIUM CHLORIDE
     Dosage: 250 ML, QD (USED TO DILUTE 0.15G ETOPOSIDE)
     Route: 041
     Dates: start: 20221107, end: 20221108

REACTIONS (2)
  - White blood cell count decreased [Recovering/Resolving]
  - Neutrophil count decreased [Recovering/Resolving]

NARRATIVE: CASE EVENT DATE: 20221109
